FAERS Safety Report 15599846 (Version 3)
Quarter: 2019Q2

REPORT INFORMATION
  Report Type: Spontaneous
  Country: JP (occurrence: JP)
  Receive Date: 20181108
  Receipt Date: 20190523
  Transmission Date: 20190711
  Serious: Yes (Other)
  Sender: FDA-Public Use
  Company Number: JP-BRISTOL-MYERS SQUIBB COMPANY-BMS-2018-104736

PATIENT
  Age: 78 Year
  Sex: Male

DRUGS (1)
  1. OPDIVO [Suspect]
     Active Substance: NIVOLUMAB
     Indication: GASTRIC CANCER
     Route: 041

REACTIONS (6)
  - Asthenia [Unknown]
  - Immobile [Unknown]
  - Depressed level of consciousness [Unknown]
  - Disorganised speech [Unknown]
  - Hyperthermia [Unknown]
  - Decreased appetite [Unknown]
